FAERS Safety Report 4336454-9 (Version None)
Quarter: 2004Q2

REPORT INFORMATION
  Report Type: 
  Country: None (occurrence: None)
  Receive Date: 20040407
  Receipt Date: 20040323
  Transmission Date: 20050107
  Serious: Yes (Hospitalization)
  Sender: FDA-Public Use
  Company Number: US_0403101709

PATIENT
  Age: 46 Year
  Sex: Female

DRUGS (7)
  1. GEMZAR [Suspect]
     Indication: OVARIAN CANCER
     Dosage: 800 MG/M2
     Dates: start: 20040113
  2. CARBOPLATIN [Concomitant]
  3. LEXAPRO [Concomitant]
  4. ATIVAN [Concomitant]
  5. PREVACID [Concomitant]
  6. NEUPOGEN [Concomitant]
  7. NEULASTA [Concomitant]

REACTIONS (13)
  - ARTHRALGIA [None]
  - DIARRHOEA [None]
  - ERYTHEMA [None]
  - INFUSION SITE SWELLING [None]
  - INTERVERTEBRAL DISC PROTRUSION [None]
  - MASS [None]
  - MUSCLE SPASMS [None]
  - MYALGIA [None]
  - NEUTROPENIA [None]
  - OEDEMA PERIPHERAL [None]
  - PAIN IN EXTREMITY [None]
  - PYREXIA [None]
  - SKIN BURNING SENSATION [None]
